FAERS Safety Report 22312993 (Version 2)
Quarter: 2023Q2

REPORT INFORMATION
  Report Type: Spontaneous
  Country: US (occurrence: US)
  Receive Date: 20230512
  Receipt Date: 20230607
  Transmission Date: 20230721
  Serious: Yes (Other)
  Sender: FDA-Public Use
  Company Number: US-AMGEN-USASP2023080235

PATIENT
  Age: 50 Year
  Sex: Male

DRUGS (1)
  1. TAVNEOS [Suspect]
     Active Substance: AVACOPAN
     Indication: Granulomatosis with polyangiitis
     Dosage: 30 MILLIGRAM, BID (TAKE 3 CAPSULES (30 MG) BY MOUTH TWICE DAILY WITH FOOD.)
     Route: 048

REACTIONS (7)
  - Sjogren^s syndrome [Unknown]
  - Eye pain [Unknown]
  - Eye inflammation [Unknown]
  - Fatigue [Unknown]
  - Dry eye [Unknown]
  - Hypoacusis [Unknown]
  - Product size issue [Unknown]
